FAERS Safety Report 24171947 (Version 1)
Quarter: 2024Q3

REPORT INFORMATION
  Report Type: Report from Study
  Country: CA (occurrence: CA)
  Receive Date: 20240805
  Receipt Date: 20240805
  Transmission Date: 20241016
  Serious: Yes (Other)
  Sender: AMARIN
  Company Number: CA-Amarin Pharma  Inc-2024AMR000385

PATIENT
  Age: 78 Year
  Sex: Female

DRUGS (2)
  1. VASCEPA [Suspect]
     Active Substance: ICOSAPENT ETHYL
     Indication: Product used for unknown indication
     Dosage: 2 PILLS IN AM / 2 PILLS IN PM
     Dates: start: 20230818
  2. VASCEPA [Suspect]
     Active Substance: ICOSAPENT ETHYL
     Dosage: 1 PILL AM AND 1 PILL PM

REACTIONS (4)
  - Surgery [Recovered/Resolved]
  - Haemorrhage [Recovered/Resolved]
  - Prescribed underdose [Unknown]
  - Therapeutic response unexpected [Unknown]
